FAERS Safety Report 13659651 (Version 1)
Quarter: 2017Q2

REPORT INFORMATION
  Report Type: Spontaneous
  Country: IE (occurrence: IE)
  Receive Date: 20170616
  Receipt Date: 20170616
  Transmission Date: 20170830
  Serious: Yes (Other)
  Sender: FDA-Public Use
  Company Number: IE-GLAXOSMITHKLINE-IE2017092557

PATIENT
  Sex: Female

DRUGS (1)
  1. LAMICTAL [Suspect]
     Active Substance: LAMOTRIGINE
     Indication: PRODUCT USED FOR UNKNOWN INDICATION
     Dosage: UNK
     Route: 065

REACTIONS (11)
  - Nausea [Unknown]
  - Renal pain [Unknown]
  - Dry mouth [Unknown]
  - Vomiting [Unknown]
  - Oropharyngeal pain [Unknown]
  - Suicidal ideation [Unknown]
  - Axillary mass [Unknown]
  - Irritability [Unknown]
  - Arthralgia [Unknown]
  - Abdominal pain [Unknown]
  - Dizziness [Unknown]
